FAERS Safety Report 4662554-X (Version None)
Quarter: 2005Q2

REPORT INFORMATION
  Report Type: 
  Country: None (occurrence: None)
  Receive Date: 20050512
  Receipt Date: 20050426
  Transmission Date: 20051028
  Serious: Yes (Life-Threatening)
  Sender: FDA-Public Use
  Company Number: EWC050443408

PATIENT
  Age: 52 Year
  Sex: Female
  Weight: 100 kg

DRUGS (8)
  1. XIGRIS [Suspect]
     Indication: SEPSIS
     Dosage: 24 UG/KG/HR
     Dates: start: 20050401, end: 20050402
  2. PIPRACIL (PIPERACILLIN SODIUM) [Concomitant]
  3. AMIKACIN [Concomitant]
  4. DERIPHYLLIN [Concomitant]
  5. PANTOPRAZOLE [Concomitant]
  6. TRIMETAZIDINE HYDROCHLORIDE [Concomitant]
  7. CLOIPIDOGREL [Concomitant]
  8. PERINDOPRIL [Concomitant]

REACTIONS (2)
  - GRAND MAL CONVULSION [None]
  - HYPOKALAEMIA [None]
